FAERS Safety Report 11280037 (Version 2)
Quarter: 2015Q4

REPORT INFORMATION
  Report Type: Spontaneous
  Country: US (occurrence: US)
  Receive Date: 20150717
  Receipt Date: 20151016
  Transmission Date: 20160304
  Serious: No
  Sender: FDA-Public Use
  Company Number: US-GALDERMA-US15002440

PATIENT
  Age: 53 Year
  Sex: Male

DRUGS (8)
  1. NEUTROGENA PURE AND FREE SUNBLOCK LOTION SPF 60+ [Concomitant]
     Indication: PROPHYLAXIS AGAINST SOLAR RADIATION
     Route: 061
  2. FENOFIBRETE [Concomitant]
     Dosage: 160 MG
     Route: 048
     Dates: start: 20150107
  3. SOOLANTRA [Suspect]
     Active Substance: IVERMECTIN
     Indication: ROSACEA
     Dosage: 1%
     Route: 061
     Dates: start: 20150429, end: 20150430
  4. SOOLANTRA [Suspect]
     Active Substance: IVERMECTIN
     Indication: ACNE
     Dosage: 1%
     Route: 061
     Dates: start: 20150602
  5. DOXYCYCLINE. [Concomitant]
     Active Substance: DOXYCYCLINE
     Indication: RASH MACULAR
     Dosage: 100 MG
     Route: 048
     Dates: start: 20150413
  6. HYDROCORTISONE VALERATE. [Concomitant]
     Active Substance: HYDROCORTISONE VALERATE
     Route: 061
  7. LEVER BAR SOAP [Concomitant]
     Indication: THERAPEUTIC SKIN CARE TOPICAL
     Route: 061
  8. DOXYCYCLINE. [Concomitant]
     Active Substance: DOXYCYCLINE
     Indication: ACNE

REACTIONS (4)
  - Rosacea [Not Recovered/Not Resolved]
  - Skin irritation [Not Recovered/Not Resolved]
  - Erythema [Not Recovered/Not Resolved]
  - Drug ineffective [Not Recovered/Not Resolved]

NARRATIVE: CASE EVENT DATE: 201504
